FAERS Safety Report 8307700-1 (Version None)
Quarter: 2012Q2

REPORT INFORMATION
  Report Type: 
  Country: None (occurrence: None)
  Receive Date: 20120424
  Receipt Date: 20120412
  Transmission Date: 20120825
  Serious: Yes (Hospitalization)
  Sender: FDA-Public Use
  Company Number: NL-MEDIMMUNE-MEDI-0015475

PATIENT
  Sex: Male
  Weight: 7.79 kg

DRUGS (2)
  1. SYNAGIS [Suspect]
     Route: 030
     Dates: start: 20120412, end: 20120412
  2. SYNAGIS [Suspect]
     Indication: HEART DISEASE CONGENITAL
     Route: 030
     Dates: start: 20111125, end: 20120326

REACTIONS (3)
  - ABDOMINAL PAIN [None]
  - FEELING ABNORMAL [None]
  - KIDNEY INFECTION [None]
